FAERS Safety Report 12704815 (Version 5)
Quarter: 2018Q4

REPORT INFORMATION
  Report Type: Report from Study
  Country: US (occurrence: US)
  Receive Date: 20160831
  Receipt Date: 20181106
  Transmission Date: 20190204
  Serious: Yes (Death, Hospitalization, Other)
  Sender: FDA-Public Use
  Company Number: US-ARIAD PHARMACEUTICALS, INC-2016US006887

PATIENT
  Sex: Male

DRUGS (4)
  1. PONATINIB [Suspect]
     Active Substance: PONATINIB
     Dosage: 15 MG, QD
     Route: 048
  2. PONATINIB [Suspect]
     Active Substance: PONATINIB
     Dosage: 15 MG, QD
     Route: 048
     Dates: start: 20181012
  3. PONATINIB [Suspect]
     Active Substance: PONATINIB
     Indication: CHRONIC MYELOID LEUKAEMIA
     Dosage: 30 MG, QD
     Route: 048
     Dates: start: 20160525
  4. PONATINIB [Suspect]
     Active Substance: PONATINIB
     Dosage: 15 MG, QD
     Route: 048

REACTIONS (18)
  - Chronic myeloid leukaemia recurrent [Unknown]
  - Cataract [Unknown]
  - Headache [Unknown]
  - Incontinence [Unknown]
  - VIth nerve paralysis [Not Recovered/Not Resolved]
  - Peripheral swelling [Unknown]
  - Neuralgia [Not Recovered/Not Resolved]
  - Asthenia [Unknown]
  - Condition aggravated [Not Recovered/Not Resolved]
  - Somnolence [Unknown]
  - Hypokinesia [Unknown]
  - Hyperkalaemia [Recovered/Resolved]
  - Diarrhoea [Unknown]
  - Diplopia [Not Recovered/Not Resolved]
  - Proctalgia [Unknown]
  - Death [Fatal]
  - White blood cell count increased [Unknown]
  - Radiation injury [Unknown]
